FAERS Safety Report 20214067 (Version 3)
Quarter: 2022Q1

REPORT INFORMATION
  Report Type: Report from Study
  Country: CA (occurrence: CA)
  Receive Date: 20211221
  Receipt Date: 20220202
  Transmission Date: 20220423
  Serious: Yes (Other)
  Sender: FDA-Public Use
  Company Number: CA-OTSUKA-2021_031219

PATIENT
  Age: 73 Year
  Sex: Male

DRUGS (2)
  1. CEDAZURIDINE\DECITABINE [Suspect]
     Active Substance: CEDAZURIDINE\DECITABINE
     Indication: Chronic myelomonocytic leukaemia
     Dosage: 135 MG (35 MG DECITABINE AND 100 MG CEDAZURIDINE), QD (ON DAYS 1-5 OF 28-DAY CYCLES X 3 REFILLS)
     Route: 065
     Dates: start: 20210823
  2. CEDAZURIDINE\DECITABINE [Suspect]
     Active Substance: CEDAZURIDINE\DECITABINE
     Dosage: 135 MG (35 MG DECITABINE AND 100 MG CEDAZURIDINE), QD FOR 35 DAYS
     Route: 065

REACTIONS (4)
  - Biopsy bone marrow [Unknown]
  - Pyrexia [Recovered/Resolved]
  - Therapy interrupted [Unknown]
  - Product use issue [Unknown]

NARRATIVE: CASE EVENT DATE: 20211214
